FAERS Safety Report 5229277-X (Version None)
Quarter: 2007Q1

REPORT INFORMATION
  Report Type: 
  Country: None (occurrence: None)
  Receive Date: 20061201
  Receipt Date: 20061109
  Transmission Date: 20070707
  Serious: No
  Sender: FDA-Public Use
  Company Number: US200608001805

PATIENT
  Sex: Male

DRUGS (5)
  1. PROZAC [Suspect]
     Indication: DEPRESSION
     Dosage: SEE IMAGE
     Dates: start: 20060101, end: 20060101
  2. PROZAC [Suspect]
     Indication: DEPRESSION
     Dosage: SEE IMAGE
     Dates: end: 20060101
  3. CYMBALTA [Suspect]
     Indication: DEPRESSION
     Dosage: SEE IMAGE
     Dates: start: 20060101, end: 20060101
  4. DOXEPIN HCL [Concomitant]
  5. ZYRTEC-D (CETIRIZINE HYDROCHLORIDE, PSEUDOEPHEDRINE HYDRCHLORIDE) [Concomitant]

REACTIONS (12)
  - ARTHRALGIA [None]
  - ASTHMA [None]
  - CONDITION AGGRAVATED [None]
  - COUGH [None]
  - DYSPNOEA [None]
  - HYPERSENSITIVITY [None]
  - INFLUENZA LIKE ILLNESS [None]
  - INSOMNIA [None]
  - LIBIDO INCREASED [None]
  - MALAISE [None]
  - RASH [None]
  - THROAT IRRITATION [None]
